FAERS Safety Report 5794231-6 (Version None)
Quarter: 2008Q2

REPORT INFORMATION
  Report Type: 
  Country: None (occurrence: None)
  Receive Date: 20080627
  Receipt Date: 20080616
  Transmission Date: 20081010
  Serious: Yes (Other)
  Sender: FDA-Public Use
  Company Number: US-PFIZER INC-2008051609

PATIENT
  Sex: Male
  Weight: 108.9 kg

DRUGS (4)
  1. CHANTIX [Suspect]
     Indication: SMOKING CESSATION THERAPY
     Route: 048
     Dates: start: 20080101, end: 20080101
  2. LOVASTATIN [Concomitant]
  3. ANTACID TAB [Concomitant]
  4. PRILOSEC [Concomitant]

REACTIONS (3)
  - AGGRESSION [None]
  - ANGER [None]
  - ARTERIAL STENT INSERTION [None]
